FAERS Safety Report 6908391-4 (Version None)
Quarter: 2010Q3

REPORT INFORMATION
  Report Type: 
  Country: None (occurrence: None)
  Receive Date: 20100805
  Receipt Date: 20100723
  Transmission Date: 20110219
  Serious: Yes (Other)
  Sender: FDA-Public Use
  Company Number: US-JNJFOC-20100800660

PATIENT
  Age: 70 Year
  Sex: Female
  Weight: 69.85 kg

DRUGS (10)
  1. EXTRA STRENGTH TYLENOL [Suspect]
     Indication: RHEUMATOID ARTHRITIS
     Route: 048
  2. EXTRA STRENGTH TYLENOL [Suspect]
     Indication: FIBROMYALGIA
     Route: 048
  3. EXTRA STRENGTH TYLENOL [Suspect]
     Indication: BACK PAIN
     Route: 048
  4. PRILOSEC [Concomitant]
     Indication: THROAT IRRITATION
  5. OXYBUTYN [Concomitant]
     Indication: BLADDER DISORDER
  6. TOPAMAX [Concomitant]
     Indication: TREMOR
  7. CYMBALTA [Concomitant]
     Indication: DEPRESSION
     Dosage: 60/30MG 2 TIMES DAILY
  8. CYMBALTA [Concomitant]
     Indication: NEUROPATHY PERIPHERAL
     Dosage: 60/30MG 2 TIMES DAILY
  9. SIMVASTATIN [Concomitant]
     Indication: BLOOD CHOLESTEROL INCREASED
  10. PANAS [Concomitant]
     Indication: CROHN'S DISEASE

REACTIONS (5)
  - COLD SWEAT [None]
  - DYSPNOEA [None]
  - FATIGUE [None]
  - PAIN [None]
  - TREMOR [None]
